FAERS Safety Report 18370853 (Version 1)
Quarter: 2020Q4

REPORT INFORMATION
  Report Type: Spontaneous
  Country: DK (occurrence: DK)
  Receive Date: 20201012
  Receipt Date: 20201012
  Transmission Date: 20210114
  Serious: Yes (Hospitalization)
  Sender: FDA-Public Use
  Company Number: DK-REGENERON PHARMACEUTICALS, INC.-2020-81544

PATIENT

DRUGS (5)
  1. LIBTAYO [Suspect]
     Active Substance: CEMIPLIMAB-RWLC
     Indication: SQUAMOUS CELL CARCINOMA OF SKIN
     Dosage: STRENGTH: 350 MG DOSE: UNKNOWN
     Route: 042
     Dates: start: 20200825, end: 20200828
  2. PANTOPRAZOLE [Concomitant]
     Active Substance: PANTOPRAZOLE
     Indication: GASTRIC ULCER
     Dosage: 40 MG, QD
     Route: 048
     Dates: start: 20200731
  3. PENOMAX [Concomitant]
     Active Substance: PIVMECILLINAM HYDROCHLORIDE
     Indication: POST PROCEDURAL INFECTION
     Dosage: UNK
     Route: 048
     Dates: start: 20200821
  4. ALFUZOSIN [Concomitant]
     Active Substance: ALFUZOSIN
     Indication: DYSURIA
     Dosage: 10 MG, QD
     Route: 048
     Dates: start: 20200804
  5. PARACETAMOL [Concomitant]
     Active Substance: ACETAMINOPHEN
     Indication: PAIN
     Dosage: 4000 MG, QD
     Route: 048
     Dates: start: 20200812

REACTIONS (1)
  - Nephropathy [Recovering/Resolving]

NARRATIVE: CASE EVENT DATE: 20200828
